FAERS Safety Report 18173171 (Version 1)
Quarter: 2020Q3

REPORT INFORMATION
  Report Type: Spontaneous
  Country: US (occurrence: US)
  Receive Date: 20200819
  Receipt Date: 20200819
  Transmission Date: 20201103
  Serious: No
  Sender: FDA-Public Use
  Company Number: US-PFIZER INC-2020321287

PATIENT
  Age: 67 Year
  Sex: Male

DRUGS (2)
  1. SUTENT [Suspect]
     Active Substance: SUNITINIB MALATE
     Indication: NEOPLASM
     Dosage: 50 MG, CYCLIC (DAILY FOR 4 WEEKS)
     Route: 048
     Dates: start: 201910
  2. SUTENT [Suspect]
     Active Substance: SUNITINIB MALATE
     Dosage: UNK, CYCLIC (2 WEEKS ON THEN ONE WEEK OFF)

REACTIONS (11)
  - Nausea [Unknown]
  - White blood cell count decreased [Unknown]
  - Arthralgia [Unknown]
  - Diarrhoea [Unknown]
  - Joint stiffness [Unknown]
  - Glossodynia [Unknown]
  - Gait disturbance [Unknown]
  - Mucosal disorder [Unknown]
  - Nasal discomfort [Unknown]
  - Oral pain [Unknown]
  - Dysstasia [Unknown]

NARRATIVE: CASE EVENT DATE: 202005
